FAERS Safety Report 8033037-4 (Version None)
Quarter: 2011Q4

REPORT INFORMATION
  Report Type: 
  Country: None (occurrence: None)
  Receive Date: 20111223
  Receipt Date: 20111213
  Transmission Date: 20120403
  Serious: Yes (Other)
  Sender: FDA-Public Use
  Company Number: 2011SP038701

PATIENT
  Sex: Female

DRUGS (12)
  1. SENNA [Concomitant]
  2. CLONIDINE [Concomitant]
  3. PEGINTERFERON ALFA-2B [Suspect]
     Indication: HEPATITIS C
     Dosage: 150 MCG; QW; SC
     Route: 058
     Dates: start: 20110715
  4. IBUPROFEN [Concomitant]
  5. CELEXA [Concomitant]
  6. RIBAVIRIN [Suspect]
     Indication: HEPATITIS C
     Dates: start: 20110715
  7. BENADRYL [Concomitant]
  8. PAXIL [Concomitant]
  9. PAXIL [Concomitant]
  10. LEVOTHYROXINE SODIUM [Concomitant]
  11. KLONOPIN [Concomitant]
  12. NEURONTIN [Concomitant]

REACTIONS (15)
  - AGGRESSION [None]
  - COLD SWEAT [None]
  - RASH PRURITIC [None]
  - FREQUENT BOWEL MOVEMENTS [None]
  - DEPRESSION [None]
  - POLLAKIURIA [None]
  - INCREASED UPPER AIRWAY SECRETION [None]
  - DIZZINESS [None]
  - COUGH [None]
  - MOOD SWINGS [None]
  - GAIT DISTURBANCE [None]
  - INJECTION SITE HAEMATOMA [None]
  - WEIGHT DECREASED [None]
  - FALL [None]
  - VISION BLURRED [None]
